FAERS Safety Report 25915873 (Version 2)
Quarter: 2025Q4

REPORT INFORMATION
  Report Type: Report from Study
  Country: JP (occurrence: JP)
  Receive Date: 20251013
  Receipt Date: 20251107
  Transmission Date: 20260117
  Serious: Yes (Hospitalization, Other)
  Sender: ROCHE
  Company Number: JP-ROCHE-10000216881

PATIENT
  Age: 73 Year
  Sex: Male
  Weight: 47 kg

DRUGS (20)
  1. PIASKY [Suspect]
     Active Substance: CROVALIMAB-AKKZ
     Indication: Paroxysmal nocturnal haemoglobinuria
     Dosage: 1000 MILLIGRAM
     Route: 042
     Dates: start: 20240904, end: 20240904
  2. PIASKY [Suspect]
     Active Substance: CROVALIMAB-AKKZ
     Route: 058
     Dates: start: 20241128, end: 20241128
  3. PIASKY [Suspect]
     Active Substance: CROVALIMAB-AKKZ
     Route: 058
     Dates: start: 20250122, end: 20250122
  4. PIASKY [Suspect]
     Active Substance: CROVALIMAB-AKKZ
     Route: 058
     Dates: start: 20250219, end: 20250219
  5. PIASKY [Suspect]
     Active Substance: CROVALIMAB-AKKZ
     Route: 058
     Dates: start: 20250319, end: 20250319
  6. PIASKY [Suspect]
     Active Substance: CROVALIMAB-AKKZ
     Route: 058
     Dates: start: 20250416, end: 20250416
  7. PIASKY [Suspect]
     Active Substance: CROVALIMAB-AKKZ
     Route: 058
     Dates: start: 20250514, end: 20250514
  8. PIASKY [Suspect]
     Active Substance: CROVALIMAB-AKKZ
     Route: 058
     Dates: start: 20250611, end: 20250611
  9. PIASKY [Suspect]
     Active Substance: CROVALIMAB-AKKZ
     Route: 058
     Dates: start: 20250709, end: 20250709
  10. PIASKY [Suspect]
     Active Substance: CROVALIMAB-AKKZ
     Route: 058
     Dates: start: 20250807, end: 20250807
  11. PIASKY [Suspect]
     Active Substance: CROVALIMAB-AKKZ
     Route: 058
     Dates: start: 20250903, end: 20250903
  12. PIASKY [Suspect]
     Active Substance: CROVALIMAB-AKKZ
     Route: 058
     Dates: start: 20241127, end: 20241127
  13. PIASKY [Suspect]
     Active Substance: CROVALIMAB-AKKZ
     Route: 058
     Dates: start: 20240905, end: 20240905
  14. PIASKY [Suspect]
     Active Substance: CROVALIMAB-AKKZ
     Dosage: 340 MG
     Route: 058
     Dates: start: 20240911, end: 20240911
  15. PIASKY [Suspect]
     Active Substance: CROVALIMAB-AKKZ
     Dosage: 340 MG
     Route: 058
     Dates: start: 20240918, end: 20240918
  16. PIASKY [Suspect]
     Active Substance: CROVALIMAB-AKKZ
     Dosage: 340 MG
     Route: 058
     Dates: start: 20240925, end: 20240925
  17. PIASKY [Suspect]
     Active Substance: CROVALIMAB-AKKZ
     Dosage: 680 MG
     Route: 058
     Dates: start: 20241002, end: 20241002
  18. PIASKY [Suspect]
     Active Substance: CROVALIMAB-AKKZ
     Dosage: 680 MG
     Route: 058
     Dates: start: 20241030, end: 20241030
  19. PIASKY [Suspect]
     Active Substance: CROVALIMAB-AKKZ
     Route: 058
     Dates: start: 20241225, end: 20241225
  20. PNEUMOCOCCAL VACCINE NOS [Concomitant]
     Active Substance: PNEUMOCOCCAL VACCINE
     Dosage: UNK
     Route: 065
     Dates: start: 20250226, end: 20250226

REACTIONS (3)
  - Anaemia [Recovered/Resolved]
  - Pneumonia bacterial [Recovered/Resolved]
  - Bilirubinuria [Recovered/Resolved]

NARRATIVE: CASE EVENT DATE: 20250215
